FAERS Safety Report 9061996 (Version 1)
Quarter: 2013Q1

REPORT INFORMATION
  Report Type: Report from Study
  Country: CA (occurrence: CA)
  Receive Date: 20130128
  Receipt Date: 20130128
  Transmission Date: 20140127
  Serious: Yes (Other)
  Sender: FDA-Public Use
  Company Number: CA-JNJFOC-20130112081

PATIENT
  Sex: Male
  Weight: 68.2 kg

DRUGS (7)
  1. REMICADE [Suspect]
     Indication: CROHN^S DISEASE
     Route: 042
  2. CREON [Concomitant]
     Route: 065
  3. PENTASA [Concomitant]
     Route: 065
  4. RABEPRAZOLE [Concomitant]
     Route: 065
  5. AZATHIOPRINE [Concomitant]
     Route: 065
  6. TYLENOL 2 [Concomitant]
     Route: 065
  7. MUSCLE RELAXANT [Concomitant]
     Route: 065

REACTIONS (2)
  - Tooth injury [Unknown]
  - Sinus disorder [Unknown]
